FAERS Safety Report 8908479 (Version 2)
Quarter: 2012Q4

REPORT INFORMATION
  Report Type: 
  Country: US (occurrence: US)
  Receive Date: 20121114
  Receipt Date: 20121222
  Transmission Date: 20130627
  Serious: No
  Sender: FDA-Public Use
  Company Number: US-ASTRAZENECA-2012SE84597

PATIENT
  Age: 85 Year
  Sex: Female

DRUGS (1)
  1. TOPROL XL [Suspect]
     Route: 048

REACTIONS (3)
  - Age-related macular degeneration [Unknown]
  - Visual impairment [Unknown]
  - Off label use [Unknown]
